FAERS Safety Report 5234339-7 (Version None)
Quarter: 2007Q1

REPORT INFORMATION
  Report Type: 
  Country: None (occurrence: None)
  Receive Date: 20070209
  Receipt Date: 20070201
  Transmission Date: 20070707
  Serious: Yes (Other)
  Sender: FDA-Public Use
  Company Number: JP-ABBOTT-07P-087-0358151-00

PATIENT
  Age: 61 Year
  Sex: Female
  Weight: 68 kg

DRUGS (14)
  1. SEVOFLURANE [Suspect]
     Indication: MAINTENANCE OF ANAESTHESIA
     Dosage: 1.0 TO 2.5%
  2. SEVOFLURANE [Suspect]
     Dosage: NOT REPORTED
  3. RILMAZAFONE HYDROCHLORIDE [Concomitant]
     Indication: ANAESTHETIC PREMEDICATION
  4. THYAMIRAL [Concomitant]
     Indication: INDUCTION OF ANAESTHESIA
     Dosage: NOT REPORTED
  5. VECURONIUM BROMIDE [Concomitant]
     Indication: INDUCTION OF ANAESTHESIA
     Dosage: NOT REPORTED
  6. OXYGEN [Concomitant]
     Indication: MAINTENANCE OF ANAESTHESIA
     Dosage: NOT REPORTED
  7. OXYGEN [Concomitant]
     Dosage: NOT REPORTED
  8. NITROUS OXIDE W/ OXYGEN [Concomitant]
     Indication: MAINTENANCE OF ANAESTHESIA
     Dosage: NOT REPORTED
  9. NITROUS OXIDE W/ OXYGEN [Concomitant]
     Dosage: NOT REPORTED
  10. EPINEPHRINE [Concomitant]
     Indication: HAEMORRHAGE CONTROL
     Dosage: 0.1%, WOULD SURFACE
  11. ATROPINE [Concomitant]
     Indication: DRUG USE FOR UNKNOWN INDICATION
  12. NEOSTIGMINE [Concomitant]
     Indication: DRUG USE FOR UNKNOWN INDICATION
  13. NICARDIPINE HYDROCHLORIDE [Concomitant]
     Indication: HYPERTENSION
  14. NICARDIPINE HYDROCHLORIDE [Concomitant]
     Indication: TACHYCARDIA

REACTIONS (1)
  - PULMONARY OEDEMA [None]
